FAERS Safety Report 15656410 (Version 1)
Quarter: 2018Q4

REPORT INFORMATION
  Report Type: Spontaneous
  Country: FR (occurrence: FR)
  Receive Date: 20181126
  Receipt Date: 20181126
  Transmission Date: 20190205
  Serious: Yes (Other)
  Sender: FDA-Public Use
  Company Number: FR-NOVOPROD-629771

PATIENT
  Age: 10 Year
  Sex: Male
  Weight: 56.9 kg

DRUGS (5)
  1. LEVOTHYROX [Concomitant]
     Active Substance: LEVOTHYROXINE
     Indication: THYROID STIMULATING HORMONE DEFICIENCY
     Dosage: 1000 ?G, QD
     Route: 048
  2. DECAPEPTYL                         /00486501/ [Concomitant]
     Active Substance: GONADORELIN
     Dosage: EVERY 28 DAYS
     Route: 030
     Dates: start: 201609
  3. LEVOTHYROX [Concomitant]
     Active Substance: LEVOTHYROXINE
     Indication: BLOOD CORTICOTROPHIN DECREASED
  4. NORDITROPIN [Suspect]
     Active Substance: SOMATROPIN
     Indication: GROWTH HORMONE DEFICIENCY
     Dosage: 1.4 MG, QD (6 DAYS/WEEK)
     Route: 058
     Dates: start: 201804, end: 20181017
  5. HYDROCORTISONE. [Concomitant]
     Active Substance: HYDROCORTISONE
     Dosage: 15 MG, QD
     Route: 048
     Dates: start: 2016

REACTIONS (2)
  - Astrocytoma, low grade [Unknown]
  - Off label use [Unknown]

NARRATIVE: CASE EVENT DATE: 20180926
